FAERS Safety Report 24156825 (Version 1)
Quarter: 2024Q3

REPORT INFORMATION
  Report Type: Spontaneous
  Country: US (occurrence: None)
  Receive Date: 20240730
  Receipt Date: 20240730
  Transmission Date: 20241017
  Serious: No
  Sender: Public
  Company Number: None

PATIENT
  Age: 58 Year
  Sex: Male
  Weight: 69.4 kg

DRUGS (17)
  1. UPADACITINIB [Suspect]
     Active Substance: UPADACITINIB
     Indication: Crohn^s disease
     Dosage: 45 MG DAILY ORAL?
     Route: 048
     Dates: start: 20240726, end: 20240726
  2. ACETAMINOPHEN [Concomitant]
     Active Substance: ACETAMINOPHEN
  3. APIXABAN [Concomitant]
     Active Substance: APIXABAN
  4. ATORVASTATIN [Concomitant]
     Active Substance: ATORVASTATIN
  5. cholechalciferol [Concomitant]
  6. DICLOFENAC [Concomitant]
     Active Substance: DICLOFENAC
  7. DULOXETINE [Concomitant]
     Active Substance: DULOXETINE
  8. EMPAGLIFLOZIN [Concomitant]
     Active Substance: EMPAGLIFLOZIN
  9. INSULIN LISPRO [Concomitant]
     Active Substance: INSULIN LISPRO
  10. LANTUS SOLOSTAR [Concomitant]
     Active Substance: INSULIN GLARGINE
  11. LOSARTAN [Concomitant]
     Active Substance: LOSARTAN\LOSARTAN POTASSIUM
  12. MAGNESIUM CHLORIDE [Concomitant]
     Active Substance: MAGNESIUM CHLORIDE
  13. METOPROLOL SUCCINATE [Concomitant]
     Active Substance: METOPROLOL SUCCINATE
  14. MIRTAZAPINE [Concomitant]
     Active Substance: MIRTAZAPINE
  15. NITROGLYCERIN [Concomitant]
     Active Substance: NITROGLYCERIN
  16. POTASSIUM CHLORIDE [Concomitant]
     Active Substance: POTASSIUM CHLORIDE
  17. VITAMIN B COMPLEX [Concomitant]
     Active Substance: CYANOCOBALAMIN\DEXPANTHENOL\NIACINAMIDE\PYRIDOXINE HYDROCHLORIDE\RIBOFLAVIN 5^-PHOSPHATE SODIUM\THIA

REACTIONS (1)
  - Suicidal ideation [None]

NARRATIVE: CASE EVENT DATE: 20240726
